FAERS Safety Report 24809146 (Version 2)
Quarter: 2025Q2

REPORT INFORMATION
  Report Type: Spontaneous
  Country: US (occurrence: US)
  Receive Date: 20250106
  Receipt Date: 20250523
  Transmission Date: 20250716
  Serious: No
  Sender: LA JOLLA PHARMACEUTICAL
  Company Number: US-LA JOLLA PHARMA, LLC-2024-INNO-US000008

PATIENT

DRUGS (1)
  1. GIAPREZA [Suspect]
     Active Substance: ANGIOTENSIN II
     Indication: Product used for unknown indication
     Route: 065

REACTIONS (1)
  - Peripheral ischaemia [Unknown]
